FAERS Safety Report 4221877 (Version 2)
Quarter: 2017Q1

REPORT INFORMATION
  Report Type: Spontaneous
  Country: JP (occurrence: JP)
  Receive Date: 20041004
  Receipt Date: 20170206
  Transmission Date: 20170429
  Serious: Yes (Other)
  Sender: FDA-Public Use
  Company Number: JP-BRISTOL-MYERS SQUIBB COMPANY-12707428

PATIENT
  Age: 42 Year
  Sex: Female

DRUGS (2)
  1. KENACORT-A [Suspect]
     Active Substance: TRIAMCINOLONE
     Indication: RETINAL VEIN OCCLUSION
     Dosage: 24 MG, UNK
     Route: 031
     Dates: start: 20031023, end: 20031023
  2. KENACORT-A [Suspect]
     Active Substance: TRIAMCINOLONE
     Indication: MACULAR OEDEMA
     Route: 065

REACTIONS (3)
  - Ophthalmic herpes simplex [Recovered/Resolved]
  - Uveitis [Recovered/Resolved]
  - Intraocular pressure increased [Recovered/Resolved]

NARRATIVE: CASE EVENT DATE: 20031029
